FAERS Safety Report 23159304 (Version 1)
Quarter: 2023Q4

REPORT INFORMATION
  Report Type: Spontaneous
  Country: US (occurrence: None)
  Receive Date: 20231108
  Receipt Date: 20231108
  Transmission Date: 20240110
  Serious: Yes (Other)
  Sender: FDA-Public Use
  Company Number: US-ACS-20230329

PATIENT
  Sex: Female

DRUGS (3)
  1. CEFEPIME [Suspect]
     Active Substance: CEFEPIME HYDROCHLORIDE
  2. DOXYCYCLINE [Suspect]
     Active Substance: DOXYCYCLINE
  3. DAPTOMYCIN [Suspect]
     Active Substance: DAPTOMYCIN

REACTIONS (1)
  - Cauda equina syndrome [Unknown]
